FAERS Safety Report 4906644-2 (Version None)
Quarter: 2006Q1

REPORT INFORMATION
  Report Type: 
  Country: None (occurrence: None)
  Receive Date: 20060209
  Receipt Date: 20051206
  Transmission Date: 20060701
  Serious: Yes (Death, Hospitalization, Disabling)
  Sender: FDA-Public Use
  Company Number: DE-GLAXOSMITHKLINE-D0048202A

PATIENT
  Age: 82 Year
  Sex: Male

DRUGS (9)
  1. ARIXTRA [Suspect]
     Indication: VENOUS THROMBOSIS
     Dosage: 7.5MG PER DAY
     Route: 058
     Dates: start: 20051028, end: 20051031
  2. PHENYTOIN [Suspect]
     Route: 065
  3. LOW MOLECULAR WEIGHT HEPARIN [Concomitant]
     Route: 065
  4. HIRUDIN [Concomitant]
     Route: 065
  5. UNSPECIFIED MEDICATION [Concomitant]
     Indication: PROPHYLAXIS
     Route: 042
  6. TAZOBAC [Concomitant]
     Indication: PNEUMONIA
     Dosage: 4.5G THREE TIMES PER DAY
     Route: 065
     Dates: start: 20051028, end: 20051105
  7. ERGENYL [Concomitant]
     Indication: EPILEPSY
     Dosage: 800MG TWICE PER DAY
     Route: 065
     Dates: start: 20051027, end: 20051118
  8. KEPPRA [Concomitant]
     Indication: EPILEPSY
     Dosage: 1000MG TWICE PER DAY
     Route: 065
     Dates: start: 20051025, end: 20051118
  9. MARCUMAR [Concomitant]
     Route: 048
     Dates: end: 20050101

REACTIONS (6)
  - COAGULOPATHY [None]
  - HAEMORRHAGE [None]
  - HEPATIC FAILURE [None]
  - HEPATIC FUNCTION ABNORMAL [None]
  - MULTI-ORGAN FAILURE [None]
  - PULMONARY HAEMORRHAGE [None]
